FAERS Safety Report 11519983 (Version 1)
Quarter: 2015Q3

REPORT INFORMATION
  Report Type: Spontaneous
  Country: US (occurrence: US)
  Receive Date: 20150918
  Receipt Date: 20150918
  Transmission Date: 20151125
  Serious: No
  Sender: FDA-Public Use
  Company Number: US-GLENMARK PHARMACEUTICALS INC, USA.-2015GMK018105

PATIENT

DRUGS (2)
  1. NORETHINDRONE ACETATE TABLETS [Suspect]
     Active Substance: NORETHINDRONE ACETATE
     Indication: ENDOMETRIOSIS
     Dosage: UNK
     Dates: start: 20150311
  2. LEUPROLIDE ACETATE. [Suspect]
     Active Substance: LEUPROLIDE ACETATE
     Indication: ENDOMETRIOSIS
     Dosage: 11.25 MG, UNK
     Dates: start: 20150311

REACTIONS (5)
  - Pain [Unknown]
  - Weight decreased [Unknown]
  - Sensory disturbance [Unknown]
  - Drug dose omission [Unknown]
  - Decreased appetite [Unknown]
